FAERS Safety Report 8359498-9 (Version None)
Quarter: 2012Q2

REPORT INFORMATION
  Report Type: 
  Country: None (occurrence: None)
  Receive Date: 20120515
  Receipt Date: 20120507
  Transmission Date: 20120825
  Serious: Yes (Hospitalization)
  Sender: FDA-Public Use
  Company Number: US-BAYER-2012-021108

PATIENT
  Age: 23 Year
  Sex: Female
  Weight: 58 kg

DRUGS (5)
  1. YAZ [Suspect]
     Dosage: UNK
     Dates: start: 20100101, end: 20100301
  2. ALBUTEROL [Concomitant]
  3. CELEXA [Concomitant]
     Dosage: 40 MG, UNK
  4. CLONAZEPAM [Concomitant]
  5. PENICILLIN VK [Concomitant]
     Dosage: 500 MG, UNK
     Dates: start: 20100201

REACTIONS (5)
  - PAIN [None]
  - EMOTIONAL DISTRESS [None]
  - GENERAL PHYSICAL HEALTH DETERIORATION [None]
  - PULMONARY EMBOLISM [None]
  - ANXIETY [None]
